FAERS Safety Report 12084422 (Version 1)
Quarter: 2016Q1

REPORT INFORMATION
  Report Type: Spontaneous
  Country: US (occurrence: None)
  Receive Date: 20160216
  Receipt Date: 20160216
  Transmission Date: 20160526
  Serious: Yes (Other)
  Sender: FDA-Public Use
  Company Number: None

PATIENT
  Age: 82 Year
  Sex: Female
  Weight: 55 kg

DRUGS (25)
  1. CUBICIN [Suspect]
     Active Substance: DAPTOMYCIN
     Indication: STAPHYLOCOCCAL INFECTION
     Dosage: 360 MG/50 ML 0.9% NACL?
     Route: 042
     Dates: start: 20151225, end: 20160125
  2. LACTOBACILLUS RHAMNOUS GG [Concomitant]
  3. MIRTAZAPINE. [Concomitant]
     Active Substance: MIRTAZAPINE
  4. AMLODIPINE [Concomitant]
     Active Substance: AMLODIPINE BESYLATE
  5. BISACODYL. [Concomitant]
     Active Substance: BISACODYL
  6. OXYCODONE [Concomitant]
     Active Substance: OXYCODONE
  7. MIRALAX [Concomitant]
     Active Substance: POLYETHYLENE GLYCOL 3350
  8. TAMSULOSIN [Concomitant]
     Active Substance: TAMSULOSIN
  9. ACETAMINOPHEN. [Concomitant]
     Active Substance: ACETAMINOPHEN
  10. ALBUTEROL. [Concomitant]
     Active Substance: ALBUTEROL
  11. VITAMIN B12 [Concomitant]
     Active Substance: CYANOCOBALAMIN
  12. NYSTATIN. [Concomitant]
     Active Substance: NYSTATIN
  13. OMEPRAZOLE. [Concomitant]
     Active Substance: OMEPRAZOLE
  14. TRAZODONE [Concomitant]
     Active Substance: TRAZODONE HYDROCHLORIDE
  15. DAPTOMYCIN. [Concomitant]
     Active Substance: DAPTOMYCIN
  16. ASPIRIN. [Concomitant]
     Active Substance: ASPIRIN
  17. FOLIC ACID. [Concomitant]
     Active Substance: FOLIC ACID
  18. ZOSYN [Concomitant]
     Active Substance: PIPERACILLIN SODIUM\TAZOBACTAM SODIUM
  19. MELATONIN [Concomitant]
     Active Substance: MELATONIN
  20. ARTIFICIAL TEARS [Concomitant]
     Active Substance: GLYCERIN\HYPROMELLOSES\POLYETHYLENE GLYCOL 400
  21. CUBICIN [Suspect]
     Active Substance: DAPTOMYCIN
     Indication: BACTERAEMIA
     Dosage: 360 MG/50 ML 0.9% NACL?
     Route: 042
     Dates: start: 20151225, end: 20160125
  22. DOCUSATE [Concomitant]
     Active Substance: DOCUSATE
  23. RIFAMPIN. [Concomitant]
     Active Substance: RIFAMPIN
  24. PREDNISONE. [Concomitant]
     Active Substance: PREDNISONE
  25. VANCOMYCIN [Concomitant]
     Active Substance: VANCOMYCIN

REACTIONS (1)
  - Blood calcium increased [None]

NARRATIVE: CASE EVENT DATE: 20160125
